FAERS Safety Report 15321357 (Version 1)
Quarter: 2018Q3

REPORT INFORMATION
  Report Type: Spontaneous
  Country: US (occurrence: US)
  Receive Date: 20180821
  Receipt Date: 20180821
  Transmission Date: 20181010
  Serious: No
  Sender: FDA-Public Use
  Company Number: None

PATIENT
  Age: 55 Year
  Sex: Female

DRUGS (4)
  1. IBRANCE [Suspect]
     Active Substance: PALBOCICLIB
     Route: 048
  2. ATENOLOL. [Concomitant]
     Active Substance: ATENOLOL
  3. BENZONATATE. [Concomitant]
     Active Substance: BENZONATATE
  4. LETROZOLE. [Concomitant]
     Active Substance: LETROZOLE

REACTIONS (1)
  - Productive cough [None]

NARRATIVE: CASE EVENT DATE: 20180720
